FAERS Safety Report 20966274 (Version 2)
Quarter: 2025Q2

REPORT INFORMATION
  Report Type: Spontaneous
  Country: CA (occurrence: None)
  Receive Date: 20220616
  Receipt Date: 20250507
  Transmission Date: 20250716
  Serious: Yes (Other)
  Sender: ORION
  Company Number: CA-PFIZER INC-202200838746

PATIENT
  Age: 70 Year
  Sex: Female

DRUGS (4)
  1. METHOTREXATE [Suspect]
     Active Substance: METHOTREXATE
     Indication: Product used for unknown indication
  2. RITUXIMAB [Concomitant]
     Active Substance: RITUXIMAB
     Indication: Rheumatoid arthritis
     Dates: start: 20220830, end: 20220915
  3. RITUXIMAB [Concomitant]
     Active Substance: RITUXIMAB
     Dates: start: 20230315, end: 20230315
  4. RITUXIMAB [Concomitant]
     Active Substance: RITUXIMAB
     Dates: start: 20230914, end: 20230914

REACTIONS (4)
  - Spinal stenosis [Unknown]
  - Arthralgia [Unknown]
  - Back pain [Unknown]
  - Malaise [Unknown]

NARRATIVE: CASE EVENT DATE: 20250101
